FAERS Safety Report 21239197 (Version 9)
Quarter: 2023Q2

REPORT INFORMATION
  Report Type: Spontaneous
  Country: US (occurrence: US)
  Receive Date: 20220822
  Receipt Date: 20230605
  Transmission Date: 20230722
  Serious: No
  Sender: FDA-Public Use
  Company Number: US-PFIZER INC-PV202200047662

PATIENT
  Age: 52 Year
  Sex: Female

DRUGS (1)
  1. IBRANCE [Suspect]
     Active Substance: PALBOCICLIB
     Dosage: 125 MG

REACTIONS (19)
  - Insomnia [Not Recovered/Not Resolved]
  - Decreased appetite [Unknown]
  - Increased tendency to bruise [Unknown]
  - Glossitis [Unknown]
  - Weight decreased [Unknown]
  - Stomatitis [Recovering/Resolving]
  - Hot flush [Unknown]
  - Night sweats [Unknown]
  - Diarrhoea [Unknown]
  - Constipation [Unknown]
  - Vomiting [Unknown]
  - Nausea [Unknown]
  - Arthralgia [Unknown]
  - Full blood count decreased [Unknown]
  - Alopecia [Unknown]
  - Fatigue [Unknown]
  - Contusion [Unknown]
  - Tongue disorder [Unknown]
  - Temperature intolerance [Unknown]

NARRATIVE: CASE EVENT DATE: 20220101
